FAERS Safety Report 9376336 (Version 2)
Quarter: 2013Q3

REPORT INFORMATION
  Report Type: Spontaneous
  Country: US (occurrence: US)
  Receive Date: 20130701
  Receipt Date: 20130717
  Transmission Date: 20140515
  Serious: No
  Sender: FDA-Public Use
  Company Number: US-009507513-1306USA011682

PATIENT
  Sex: Female

DRUGS (1)
  1. MK-8415 [Suspect]
     Indication: CONTRACEPTION
     Dosage: 1 ROD
     Route: 059
     Dates: start: 201112

REACTIONS (2)
  - Implant site pain [Unknown]
  - Device deployment issue [Unknown]
